FAERS Safety Report 4290743-5 (Version None)
Quarter: 2004Q1

REPORT INFORMATION
  Report Type: 
  Country: None (occurrence: None)
  Receive Date: 20040211
  Receipt Date: 20031006
  Transmission Date: 20041129
  Serious: No
  Sender: FDA-Public Use
  Company Number: US-GLAXOSMITHKLINE-A0428976A

PATIENT
  Age: 33 Year
  Sex: Female

DRUGS (1)
  1. PAXIL [Suspect]
     Indication: DEPRESSION
     Route: 048
     Dates: start: 20030901, end: 20030901

REACTIONS (4)
  - DYSPHEMIA [None]
  - EYE MOVEMENT DISORDER [None]
  - MOTOR DYSFUNCTION [None]
  - MUSCLE TWITCHING [None]
